FAERS Safety Report 4668135-6 (Version None)
Quarter: 2005Q2

REPORT INFORMATION
  Report Type: 
  Country: None (occurrence: None)
  Receive Date: 20050521
  Receipt Date: 20041221
  Transmission Date: 20051028
  Serious: Yes (Other)
  Sender: FDA-Public Use
  Company Number: PHEH2004US13531

PATIENT
  Age: 69 Year
  Sex: Male

DRUGS (1)
  1. ZOMETA [Suspect]
     Indication: METASTASES TO BONE
     Dosage: 4 MG, QMO
     Route: 042
     Dates: start: 20030113, end: 20041221

REACTIONS (4)
  - BLOOD CREATININE INCREASED [None]
  - JAW DISORDER [None]
  - OSTEONECROSIS [None]
  - TOOTH LOSS [None]
